FAERS Safety Report 6316576-3 (Version None)
Quarter: 2009Q3

REPORT INFORMATION
  Report Type: 
  Country: None (occurrence: None)
  Receive Date: 20090820
  Receipt Date: 20090817
  Transmission Date: 20100115
  Serious: Yes (Other)
  Sender: FDA-Public Use
  Company Number: PHEH2009US08573

PATIENT

DRUGS (1)
  1. AFINITOR [Suspect]
     Indication: RENAL CELL CARCINOMA
     Dosage: UNK

REACTIONS (2)
  - MALIGNANT NEOPLASM PROGRESSION [None]
  - VERTEBRAL COLUMN MASS [None]
